FAERS Safety Report 11899315 (Version 1)
Quarter: 2016Q1

REPORT INFORMATION
  Report Type: Spontaneous
  Country: US (occurrence: US)
  Receive Date: 20160108
  Receipt Date: 20160108
  Transmission Date: 20160526
  Serious: No
  Sender: FDA-Public Use
  Company Number: US-SA-2015SA165584

PATIENT
  Age: 48 Year
  Sex: Male

DRUGS (2)
  1. AFREZZA [Suspect]
     Active Substance: INSULIN HUMAN
     Indication: TYPE 1 DIABETES MELLITUS
     Dosage: FEQUENCY: 5 TIMES DAILY
     Route: 055
     Dates: start: 201509
  2. AFREZZA [Suspect]
     Active Substance: INSULIN HUMAN
     Indication: TYPE 1 DIABETES MELLITUS
     Dosage: DOSAGE: 30-45 UNITS DAILY
     Route: 055
     Dates: start: 201509, end: 201509

REACTIONS (3)
  - Drug effect decreased [Unknown]
  - Throat irritation [Unknown]
  - Product use issue [Unknown]
